FAERS Safety Report 14813144 (Version 1)
Quarter: 2018Q2

REPORT INFORMATION
  Report Type: Report from Study
  Country: EG (occurrence: EG)
  Receive Date: 20180426
  Receipt Date: 20180426
  Transmission Date: 20180711
  Serious: Yes (Other)
  Sender: FDA-Public Use
  Company Number: EG-ROCHE-2109381

PATIENT

DRUGS (3)
  1. SOFOSBUVIR [Suspect]
     Active Substance: SOFOSBUVIR
     Indication: HEPATITIS C VIRUS TEST POSITIVE
     Route: 048
  2. RIBAVIRIN. [Suspect]
     Active Substance: RIBAVIRIN
     Indication: HEPATITIS C VIRUS TEST POSITIVE
     Dosage: 600-1000 MG IN DIVIDED DOSES ACCORDING TO PATIENT TOLERABILITY.
     Route: 065
  3. DACLATASVIR. [Suspect]
     Active Substance: DACLATASVIR
     Indication: HEPATITIS C VIRUS TEST POSITIVE
     Route: 048

REACTIONS (10)
  - Pyrexia [Unknown]
  - Insomnia [Unknown]
  - Platelet count increased [Unknown]
  - Dizziness [Unknown]
  - Decreased appetite [Unknown]
  - Hepatic failure [Unknown]
  - Haemoglobin decreased [Unknown]
  - Fatigue [Unknown]
  - Headache [Unknown]
  - Hyperbilirubinaemia [Unknown]
